FAERS Safety Report 18507628 (Version 1)
Quarter: 2020Q4

REPORT INFORMATION
  Report Type: Spontaneous
  Country: US (occurrence: US)
  Receive Date: 20201116
  Receipt Date: 20201116
  Transmission Date: 20210114
  Serious: Yes (Hospitalization, Other)
  Sender: FDA-Public Use
  Company Number: US-ABBVIE-16K-163-3059843-00

PATIENT
  Age: 69 Year
  Sex: Male
  Weight: 83 kg

DRUGS (19)
  1. IMBRUVICA [Suspect]
     Active Substance: IBRUTINIB
     Indication: WALDENSTROM^S MACROGLOBULINAEMIA
     Dosage: 420 MG, QD
     Route: 048
     Dates: start: 20161202
  2. DAPSONE. [Suspect]
     Active Substance: DAPSONE
     Indication: PROPHYLAXIS
     Dosage: UNK
     Route: 065
     Dates: start: 201612
  3. SELENIUM [Concomitant]
     Active Substance: SELENIUM
     Indication: INFLAMMATION
     Dosage: UNK
  4. SYNTHROID [Suspect]
     Active Substance: LEVOTHYROXINE SODIUM
     Indication: HYPOTHYROIDISM
     Dosage: 50 MG, QD
     Route: 048
     Dates: start: 20161201
  5. IMBRUVICA [Suspect]
     Active Substance: IBRUTINIB
     Dosage: 560 MG, QD
     Route: 048
     Dates: start: 20161203, end: 20180424
  6. LOPRESSOR [Suspect]
     Active Substance: METOPROLOL TARTRATE
     Indication: ATRIAL FIBRILLATION
     Dosage: 12.5 MG, BID
     Route: 048
  7. TIKOSYN [Concomitant]
     Active Substance: DOFETILIDE
     Dosage: 25 MG, BID
     Route: 048
     Dates: start: 20170815
  8. COENZYME Q10 [Concomitant]
     Active Substance: DIETARY SUPPLEMENT\UBIDECARENONE
     Indication: PRODUCT USED FOR UNKNOWN INDICATION
  9. ASTELIN [Concomitant]
     Active Substance: AZELASTINE HYDROCHLORIDE
     Indication: NASAL CONGESTION
     Dosage: AS NEEDED
  10. SYNTHROID [Suspect]
     Active Substance: LEVOTHYROXINE SODIUM
     Dosage: 62.5 MCG, QD
     Route: 048
  11. IMBRUVICA [Suspect]
     Active Substance: IBRUTINIB
     Dosage: 560 MG, QD
     Route: 048
     Dates: start: 20180407, end: 20180424
  12. TIKOSYN [Concomitant]
     Active Substance: DOFETILIDE
     Indication: ATRIAL FIBRILLATION
     Dosage: 250 UG, QD
     Dates: start: 2014
  13. CURCUMIN BIOPERINE [Concomitant]
     Indication: PRODUCT USED FOR UNKNOWN INDICATION
     Dosage: 500 MG, UNK
  14. IMBRUVICA [Suspect]
     Active Substance: IBRUTINIB
     Dosage: 140 MG, QD
     Route: 048
  15. TRENTAL [Concomitant]
     Active Substance: PENTOXIFYLLINE
     Indication: CYSTITIS
     Dosage: UNK, QD
  16. IMBRUVICA [Suspect]
     Active Substance: IBRUTINIB
     Indication: MARGINAL ZONE LYMPHOMA
     Dosage: 420 MG, QD
     Route: 048
     Dates: start: 20161203
  17. IMBRUVICA [Suspect]
     Active Substance: IBRUTINIB
     Dosage: 560 MG, QD
     Route: 048
     Dates: start: 20160101, end: 20180331
  18. TRENTAL [Concomitant]
     Active Substance: PENTOXIFYLLINE
     Dosage: 400 MG, BID
  19. ASPIRIN. [Concomitant]
     Active Substance: ASPIRIN
     Indication: THROMBOSIS PROPHYLAXIS
     Dosage: 81 MG, QD
     Route: 048

REACTIONS (50)
  - Blood immunoglobulin G decreased [Not Recovered/Not Resolved]
  - Blood immunoglobulin A decreased [Not Recovered/Not Resolved]
  - Mean arterial pressure decreased [Not Recovered/Not Resolved]
  - Monoclonal gammopathy [Recovering/Resolving]
  - Beta 2 microglobulin increased [Not Recovered/Not Resolved]
  - Supraventricular extrasystoles [Recovered/Resolved]
  - Presyncope [Unknown]
  - Abdominal distension [Not Recovered/Not Resolved]
  - Therapeutic response unexpected [Recovered/Resolved]
  - Blood glucose abnormal [Not Recovered/Not Resolved]
  - Protein total decreased [Not Recovered/Not Resolved]
  - Methaemoglobinaemia [Unknown]
  - Respiratory disorder [Recovered/Resolved]
  - Extrasystoles [Not Recovered/Not Resolved]
  - Hypotension [Not Recovered/Not Resolved]
  - Diarrhoea [Not Recovered/Not Resolved]
  - Haemoglobin abnormal [Recovered/Resolved]
  - Dizziness [Recovering/Resolving]
  - Dyspnoea [Recovered/Resolved]
  - Blood creatinine increased [Recovering/Resolving]
  - Atrial fibrillation [Not Recovered/Not Resolved]
  - Heart rate decreased [Unknown]
  - Hypothyroidism [Not Recovered/Not Resolved]
  - Nerve conduction studies abnormal [Unknown]
  - Palpitations [Recovering/Resolving]
  - Abdominal pain upper [Recovered/Resolved]
  - Muscle spasms [Not Recovered/Not Resolved]
  - Fatigue [Unknown]
  - Asthenia [Unknown]
  - Cyanosis [Not Recovered/Not Resolved]
  - Oxygen saturation decreased [Not Recovered/Not Resolved]
  - Blood immunoglobulin M decreased [Not Recovered/Not Resolved]
  - Night sweats [Recovered/Resolved]
  - Onychoclasis [Not Recovered/Not Resolved]
  - Flatulence [Not Recovered/Not Resolved]
  - Haematocrit abnormal [Recovered/Resolved]
  - Blood lactate dehydrogenase increased [Not Recovered/Not Resolved]
  - Rash [Not Recovered/Not Resolved]
  - Anaemia [Not Recovered/Not Resolved]
  - Platelet count abnormal [Recovering/Resolving]
  - Blood potassium decreased [Unknown]
  - Diarrhoea [Not Recovered/Not Resolved]
  - Dyspepsia [Recovered/Resolved]
  - Ventricular extrasystoles [Recovered/Resolved]
  - Arrhythmia [Recovered/Resolved]
  - Faeces soft [Not Recovered/Not Resolved]
  - Weight increased [Not Recovered/Not Resolved]
  - Limb mass [Not Recovered/Not Resolved]
  - Serum ferritin increased [Unknown]
  - Lymphadenopathy [Not Recovered/Not Resolved]

NARRATIVE: CASE EVENT DATE: 201612
